FAERS Safety Report 9677899 (Version 1)
Quarter: 2013Q4

REPORT INFORMATION
  Report Type: Spontaneous
  Country: AU (occurrence: AU)
  Receive Date: 20131108
  Receipt Date: 20131108
  Transmission Date: 20140711
  Serious: Yes (Other)
  Sender: FDA-Public Use
  Company Number: AU-TEVA-442296ISR

PATIENT
  Age: 8 Year
  Sex: Male

DRUGS (1)
  1. HYDROCHLOROTHIAZIDE [Suspect]
     Indication: CONGENITAL NEPHROGENIC DIABETES INSIPIDUS

REACTIONS (2)
  - Dermatitis bullous [Recovered/Resolved]
  - Type IV hypersensitivity reaction [Recovered/Resolved]
